FAERS Safety Report 17303456 (Version 1)
Quarter: 2020Q1

REPORT INFORMATION
  Report Type: Report from Study
  Country: CA (occurrence: CA)
  Receive Date: 20200122
  Receipt Date: 20200122
  Transmission Date: 20200409
  Serious: Yes (Other)
  Sender: FDA-Public Use
  Company Number: CA-NALPROPION PHARMACEUTICALS INC.-2019-008837

PATIENT

DRUGS (10)
  1. ATACAND [Concomitant]
     Active Substance: CANDESARTAN CILEXETIL
     Indication: HYPERTENSION
     Dosage: DAILY
     Route: 048
  2. CONTRAVE [Suspect]
     Active Substance: BUPROPION HYDROCHLORIDE\NALTREXONE HYDROCHLORIDE
     Indication: WEIGHT CONTROL
     Dosage: 1 TABLET IN MORNING; 8 MG/90 MG
     Route: 048
     Dates: start: 20190908, end: 20190914
  3. CATAPRES                           /00171101/ [Concomitant]
     Active Substance: CLONIDINE
     Indication: HYPERTENSION
     Dosage: DAILY
     Route: 048
  4. CELLCEPT [Concomitant]
     Active Substance: MYCOPHENOLATE MOFETIL\MYCOPHENOLATE MOFETIL HYDROCHLORIDE
     Indication: KIDNEY TRANSPLANT REJECTION
     Dosage: DAILY
     Route: 048
  5. APRESOLINE HYDROCHLORIDE [Concomitant]
     Active Substance: HYDRALAZINE HYDROCHLORIDE
     Indication: HYPERTENSION
     Dosage: DAILY
     Route: 048
  6. INSULIN [Concomitant]
     Active Substance: INSULIN NOS
     Indication: DIABETES MELLITUS
     Dosage: DOSE VARIES
     Route: 065
  7. ADVAGRAF [Concomitant]
     Active Substance: TACROLIMUS
     Indication: KIDNEY TRANSPLANT REJECTION
     Dosage: DAILY
     Route: 048
  8. CONTRAVE [Suspect]
     Active Substance: BUPROPION HYDROCHLORIDE\NALTREXONE HYDROCHLORIDE
     Dosage: 1 TABLET IN MORNING 1 TABLET IN EVENING; 8 MG/90 MG
     Route: 048
     Dates: start: 20190915
  9. RENEDIL [Concomitant]
     Active Substance: FELODIPINE
     Indication: HYPERTENSION
     Dosage: DAILY
     Route: 048
  10. HYDROCHLOROTHIAZIDE. [Concomitant]
     Active Substance: HYDROCHLOROTHIAZIDE
     Indication: HYPERTENSION
     Dosage: DAILY
     Route: 048

REACTIONS (5)
  - Abdominal pain [Recovered/Resolved]
  - Eye haemorrhage [Unknown]
  - Constipation [Recovered/Resolved]
  - Nausea [Recovered/Resolved]
  - Vision blurred [Unknown]

NARRATIVE: CASE EVENT DATE: 2019
